FAERS Safety Report 10770434 (Version 1)
Quarter: 2015Q1

REPORT INFORMATION
  Report Type: Spontaneous
  Country: US (occurrence: US)
  Receive Date: 20150206
  Receipt Date: 20150206
  Transmission Date: 20150721
  Serious: Yes (Other)
  Sender: FDA-Public Use
  Company Number: US-GILEAD-2015-0135979

PATIENT
  Age: 81 Year
  Sex: Female

DRUGS (10)
  1. MIDODRINE [Concomitant]
     Active Substance: MIDODRINE
  2. LIPITOR [Concomitant]
     Active Substance: ATORVASTATIN CALCIUM
  3. COLACE [Concomitant]
     Active Substance: DOCUSATE SODIUM
  4. CARTIA XT [Concomitant]
     Active Substance: DILTIAZEM HYDROCHLORIDE
  5. ELIQUIS [Concomitant]
     Active Substance: APIXABAN
  6. LETAIRIS [Suspect]
     Active Substance: AMBRISENTAN
     Indication: PULMONARY HYPERTENSION
     Dosage: 5 MG, QD
     Route: 065
     Dates: start: 20141021, end: 20150126
  7. VITAMIN D [Concomitant]
     Active Substance: CHOLECALCIFEROL
  8. ADCIRCA [Concomitant]
     Active Substance: TADALAFIL
  9. FERROUS SULFATE [Concomitant]
     Active Substance: FERROUS SULFATE\FERROUS SULFATE, DRIED
  10. FAMOTIDINE. [Concomitant]
     Active Substance: FAMOTIDINE

REACTIONS (1)
  - Drug ineffective [Unknown]
